FAERS Safety Report 5961008-8 (Version None)
Quarter: 2008Q4

REPORT INFORMATION
  Report Type: 
  Country: None (occurrence: None)
  Receive Date: 20081121
  Receipt Date: 20080214
  Transmission Date: 20090506
  Serious: No
  Sender: FDA-Public Use
  Company Number: A0702753A

PATIENT
  Age: 63 Year
  Sex: Male
  Weight: 97.7 kg

DRUGS (8)
  1. DIGOXIN [Suspect]
     Indication: ATRIAL FIBRILLATION
     Route: 048
     Dates: start: 19800101, end: 19840101
  2. COUMADIN [Concomitant]
  3. LIPITOR [Concomitant]
  4. NADOLOL [Concomitant]
  5. ASPIRIN [Concomitant]
  6. FLOMAX [Concomitant]
  7. OXYBUTYN [Concomitant]
  8. LEVITRA [Concomitant]

REACTIONS (1)
  - DRUG INEFFECTIVE [None]
